FAERS Safety Report 4854421-3 (Version None)
Quarter: 2005Q4

REPORT INFORMATION
  Report Type: 
  Country: None (occurrence: None)
  Receive Date: 20051213
  Receipt Date: 20051130
  Transmission Date: 20060501
  Serious: Yes (Hospitalization, Other)
  Sender: FDA-Public Use
  Company Number: PHHO2005JP17818

PATIENT
  Age: 61 Year
  Sex: Male
  Weight: 74.027 kg

DRUGS (16)
  1. VISUDYNE [Suspect]
     Indication: MACULAR DEGENERATION
     Dosage: 6 MG/M^2 ONCE IV
     Route: 042
     Dates: start: 20050111, end: 20050111
  2. VISUDYNE [Suspect]
     Indication: MACULAR DEGENERATION
     Dosage: 6 MG/M^2 ONCE IV
     Route: 042
     Dates: start: 20040928, end: 20040928
  3. VISUDYNE [Suspect]
     Indication: MACULAR DEGENERATION
     Dosage: 6 MG/M^2 ONCE IV
     Route: 042
     Dates: start: 20040625, end: 20040625
  4. AMARYL [Concomitant]
  5. LASIX [Concomitant]
  6. BUFFERIN [Concomitant]
  7. ACECOL [Concomitant]
  8. MAGNESIUM OXIDE [Concomitant]
  9. KARY UNI [Concomitant]
  10. SANCOBA [Concomitant]
  11. ADONA [Concomitant]
  12. NORVASC [Concomitant]
  13. DIOVAN [Concomitant]
  14. CARDENALIN [Concomitant]
  15. ALDACTONE [Concomitant]
  16. XANBON [Concomitant]

REACTIONS (10)
  - BLOOD CREATININE INCREASED [None]
  - BLOOD UREA INCREASED [None]
  - CARDIAC FAILURE CONGESTIVE [None]
  - CEREBRAL INFARCTION [None]
  - CONDITION AGGRAVATED [None]
  - FACE OEDEMA [None]
  - HYPERTENSION [None]
  - OEDEMA PERIPHERAL [None]
  - RETINAL VEIN OCCLUSION [None]
  - VISUAL ACUITY REDUCED [None]
